FAERS Safety Report 7243065-4 (Version None)
Quarter: 2011Q1

REPORT INFORMATION
  Report Type: 
  Country: None (occurrence: None)
  Receive Date: 20110125
  Receipt Date: 20101228
  Transmission Date: 20110831
  Serious: Yes (Death)
  Sender: FDA-Public Use
  Company Number: IE-PFIZER INC-GBWYE113031JUL07

PATIENT
  Age: 61 Year
  Sex: Male

DRUGS (20)
  1. DICLOFENAC [Concomitant]
     Route: 065
  2. VANCOMYCIN HCL [Suspect]
     Dosage: 1.0 G, 1X/DAY
     Route: 065
  3. VELOSEF [Suspect]
     Dosage: UNK
     Route: 065
     Dates: start: 20070625, end: 20070626
  4. FLAGYL [Concomitant]
     Route: 065
  5. ZYVOX [Suspect]
     Route: 065
  6. SEPTRIN [Concomitant]
     Route: 065
  7. CEFRADINE [Concomitant]
     Route: 065
  8. FUCIDINE CAP [Concomitant]
     Route: 065
  9. INDAPAMIDE [Concomitant]
     Route: 065
  10. CLEXANE [Suspect]
     Dosage: 40.0 MG, 1X/DAY
     Route: 042
  11. BACTRIM [Suspect]
     Route: 065
  12. INNOHEP [Suspect]
     Dosage: UNK
     Route: 065
     Dates: start: 20070622
  13. TARGOCID [Suspect]
     Route: 065
  14. ACETYLSALICYLIC ACID [Concomitant]
     Route: 065
  15. BISOPROLOL [Concomitant]
     Route: 065
  16. VALSARTAN [Concomitant]
     Route: 065
  17. ZOTON FASTAB [Suspect]
     Indication: PROPHYLAXIS AGAINST GASTROINTESTINAL ULCER
     Dosage: 30MG (FREQUENCY NOT STATED)
     Route: 048
     Dates: start: 20070528, end: 20070709
  18. OMEPRAZOLE [Suspect]
     Route: 065
  19. DICLOFENAC SODIUM [Suspect]
     Route: 065
  20. LANSOPRAZOLE [Concomitant]
     Route: 065

REACTIONS (1)
  - TOXIC EPIDERMAL NECROLYSIS [None]
